FAERS Safety Report 18646955 (Version 1)
Quarter: 2020Q4

REPORT INFORMATION
  Report Type: Spontaneous
  Country: FR (occurrence: FR)
  Receive Date: 20201222
  Receipt Date: 20201222
  Transmission Date: 20210114
  Serious: Yes (Other)
  Sender: FDA-Public Use
  Company Number: FR-TEVA-2020-FR-1859745

PATIENT
  Age: 34 Year
  Sex: Male
  Weight: 100 kg

DRUGS (7)
  1. CLOPIXOL ACTION PROLONGEE 200 MG/1 ML, SOLUTION INJECTABLE I.M. [Suspect]
     Active Substance: ZUCLOPENTHIXOL
     Indication: SCHIZOPHRENIA
     Dosage: PROLONGED ACTION, 2DF
     Route: 042
  2. VALIUM [Concomitant]
     Active Substance: DIAZEPAM
     Dosage: SCORED
  3. TERALITHE [Concomitant]
     Active Substance: LITHIUM CARBONATE
     Dosage: SCORED
  4. SULFARLEM [Concomitant]
     Active Substance: ANETHOLTRITHION
  5. QUETIAPINE. [Suspect]
     Active Substance: QUETIAPINE
     Indication: SCHIZOPHRENIA
     Dosage: 800MG
     Route: 048
     Dates: start: 202007
  6. SOLIAN 100 MG, COMPRIME SECABLE [Suspect]
     Active Substance: AMISULPRIDE
     Indication: SCHIZOPHRENIA
     Dosage: SCORED, 100MG
     Route: 048
     Dates: start: 20201113
  7. MOVICOL [Concomitant]
     Active Substance: POLYETHYLENE GLYCOL 3350\POTASSIUM CHLORIDE\SODIUM BICARBONATE\SODIUM CHLORIDE

REACTIONS (1)
  - Metabolic syndrome [Not Recovered/Not Resolved]
